FAERS Safety Report 4758941-1 (Version None)
Quarter: 2005Q3

REPORT INFORMATION
  Report Type: 
  Country: None (occurrence: None)
  Receive Date: 20050831
  Receipt Date: 20050824
  Transmission Date: 20060218
  Serious: Yes (Other)
  Sender: FDA-Public Use
  Company Number: GXKR2005DE01459

PATIENT
  Age: 68 Year
  Sex: Female

DRUGS (1)
  1. SULFAMETHOXAZOLE+TRIMETHOPRIM (NGX) (SULFAMETHOXAZOLE, TRIMETHOPRIM) T [Suspect]
     Indication: URINARY TRACT INFECTION
     Dosage: 960 MG, BID, ORAL
     Route: 048
     Dates: start: 20050719, end: 20050720

REACTIONS (13)
  - AGEUSIA [None]
  - ARTHRALGIA [None]
  - CHILLS [None]
  - DERMATITIS ALLERGIC [None]
  - ERYTHEMA [None]
  - FACE OEDEMA [None]
  - HYPERSENSITIVITY [None]
  - OEDEMA GENITAL [None]
  - OEDEMA PERIPHERAL [None]
  - PAIN IN EXTREMITY [None]
  - PRURITUS [None]
  - SKIN EXFOLIATION [None]
  - URINARY TRACT INFECTION [None]
